FAERS Safety Report 9302179 (Version 2)
Quarter: 2013Q4

REPORT INFORMATION
  Report Type: Spontaneous
  Country: US (occurrence: US)
  Receive Date: 20130522
  Receipt Date: 20131108
  Transmission Date: 20140711
  Serious: Yes (Hospitalization)
  Sender: FDA-Public Use
  Company Number: US-B.I. PHARMACEUTICALS,INC./RIDGEFIELD-2013-BI-14116BP

PATIENT
  Age: 82 Year
  Sex: Female
  Weight: 79.66 kg

DRUGS (10)
  1. PRADAXA [Suspect]
     Indication: ANTICOAGULANT THERAPY
     Dosage: 150 MG
     Route: 048
     Dates: start: 20110527, end: 20120508
  2. TIKOSYN [Concomitant]
     Dosage: 500 MCG
  3. FUROSEMIDE [Concomitant]
  4. LEVOTHYROXINE [Concomitant]
     Dosage: 50 MCG
     Dates: start: 2003
  5. POTASSIUM CHLORIDE [Concomitant]
     Dosage: 10 MEQ
  6. VITAMIN D [Concomitant]
     Dosage: 3000 U
  7. VITAMIN B12 [Concomitant]
     Dosage: 1000 MCG
  8. FISH OIL [Concomitant]
  9. MAGNESIUM [Concomitant]
  10. CALTRATE [Concomitant]

REACTIONS (2)
  - Gastrointestinal haemorrhage [Unknown]
  - Loss of consciousness [Unknown]
